FAERS Safety Report 9337091 (Version 3)
Quarter: 2014Q3

REPORT INFORMATION
  Report Type: Spontaneous
  Country: US (occurrence: US)
  Receive Date: 20130607
  Receipt Date: 20140707
  Transmission Date: 20150326
  Serious: Yes (Hospitalization, Other)
  Sender: FDA-Public Use
  Company Number: US-MERCK-1306USA000493

PATIENT
  Sex: Female
  Weight: 65.76 kg

DRUGS (5)
  1. FOSAMAX PLUS D [Suspect]
     Active Substance: ALENDRONATE SODIUM\CHOLECALCIFEROL
     Indication: OSTEOPOROSIS
     Dosage: 70/2800 MG, QW
     Route: 048
     Dates: start: 20070713, end: 20080718
  2. FOSAMAX [Suspect]
     Active Substance: ALENDRONATE SODIUM
     Dosage: 70 MG, QW
     Route: 048
     Dates: start: 20040920, end: 20070404
  3. HORMONAL THERAPY WITH UNSPECIFIED ESTROGENS [Concomitant]
     Indication: OESTROGEN THERAPY
     Dosage: UNK
     Dates: start: 1980, end: 2004
  4. FOSAMAX [Suspect]
     Active Substance: ALENDRONATE SODIUM
     Indication: OSTEOPOROSIS
     Dosage: UNK
     Route: 048
     Dates: start: 1995
  5. ALENDRONATE SODIUM. [Suspect]
     Active Substance: ALENDRONATE SODIUM
     Indication: OSTEOPOROSIS
     Dosage: 70 MG, QW
     Route: 048
     Dates: start: 20080808

REACTIONS (25)
  - Breast cancer [Unknown]
  - Neoplasm malignant [Unknown]
  - Breast lump removal [Unknown]
  - Back pain [Unknown]
  - Rash [Unknown]
  - Femur fracture [Recovered/Resolved]
  - Intramedullary rod insertion [Recovered/Resolved]
  - Pain [Unknown]
  - Hypertrophy [Unknown]
  - Carotid arteriosclerosis [Unknown]
  - Cataract operation [Unknown]
  - Balance disorder [Unknown]
  - Hypertension [Unknown]
  - Adverse event [Unknown]
  - Diabetes mellitus [Unknown]
  - Temporomandibular joint syndrome [Unknown]
  - Arthritis [Unknown]
  - Bronchitis [Unknown]
  - Low turnover osteopathy [Unknown]
  - Blood cholesterol increased [Unknown]
  - Knee arthroplasty [Unknown]
  - Knee arthroplasty [Unknown]
  - Fibula fracture [Unknown]
  - Hysterectomy [Unknown]
  - Arthralgia [Unknown]

NARRATIVE: CASE EVENT DATE: 2004
